FAERS Safety Report 7296295-X (Version None)
Quarter: 2011Q1

REPORT INFORMATION
  Report Type: 
  Country: None (occurrence: None)
  Receive Date: 20110204
  Receipt Date: 20110118
  Transmission Date: 20110831
  Serious: Yes (Other)
  Sender: FDA-Public Use
  Company Number: 2011-00093

PATIENT
  Age: 62 Year
  Sex: Male

DRUGS (5)
  1. WARFARIN SODIUM [Suspect]
     Indication: ATRIAL FIBRILLATION
     Dosage: ORAL
     Route: 048
     Dates: start: 20070101
  2. WARFARIN SODIUM [Suspect]
     Indication: TRANSIENT ISCHAEMIC ATTACK
     Dosage: ORAL
     Route: 048
     Dates: start: 20070101
  3. SIMVASTATIN [Suspect]
     Indication: TRANSIENT ISCHAEMIC ATTACK
     Dosage: 40 MG (40 MG) ORAL
     Route: 048
     Dates: start: 20070101
  4. SIMVASTATIN [Suspect]
     Indication: ATRIAL FIBRILLATION
     Dosage: 40 MG (40 MG) ORAL
     Route: 048
     Dates: start: 20070101
  5. RAMIPRIL [Suspect]
     Indication: HYPERTENSION
     Dosage: 5 MG (5 MG) ORAL
     Route: 048

REACTIONS (1)
  - HYPONATRAEMIA [None]
